FAERS Safety Report 18173390 (Version 3)
Quarter: 2020Q4

REPORT INFORMATION
  Report Type: Spontaneous
  Country: US (occurrence: US)
  Receive Date: 20200819
  Receipt Date: 20201210
  Transmission Date: 20210113
  Serious: No
  Sender: FDA-Public Use
  Company Number: US-SA-2020SA212585

PATIENT

DRUGS (2)
  1. LANTUS [Suspect]
     Active Substance: INSULIN GLARGINE
     Indication: TYPE 1 DIABETES MELLITUS
     Dosage: 7 IU, HS
     Route: 065
     Dates: start: 2020
  2. HUMALOG [Concomitant]
     Active Substance: INSULIN LISPRO
     Route: 065

REACTIONS (4)
  - Device operational issue [Unknown]
  - Needle issue [Unknown]
  - Blood glucose increased [Unknown]
  - Wrong technique in product usage process [Unknown]

NARRATIVE: CASE EVENT DATE: 2020
